FAERS Safety Report 24251180 (Version 1)
Quarter: 2024Q3

REPORT INFORMATION
  Report Type: Spontaneous
  Country: US (occurrence: US)
  Receive Date: 20240826
  Receipt Date: 20240826
  Transmission Date: 20241016
  Serious: No
  Sender: SUNOVION
  Company Number: US-SMPA-2024SPA000805AA

PATIENT

DRUGS (8)
  1. ORGOVYX [Suspect]
     Active Substance: RELUGOLIX
     Indication: Prostate cancer
     Dosage: 360 MG, SINGLE
     Route: 048
     Dates: start: 20230810, end: 20240811
  2. ORGOVYX [Suspect]
     Active Substance: RELUGOLIX
     Dosage: 120 MG, SINGLE
     Route: 048
     Dates: start: 20230811
  3. ATORVASTATIN [Concomitant]
     Active Substance: ATORVASTATIN
  4. DESCOVY [Concomitant]
     Active Substance: EMTRICITABINE\TENOFOVIR ALAFENAMIDE FUMARATE
  5. GABAPENTIN [Concomitant]
     Active Substance: GABAPENTIN
  6. LOSARTAN POTASSIUM [Concomitant]
     Active Substance: LOSARTAN POTASSIUM
  7. TEMAZEPAM [Concomitant]
     Active Substance: TEMAZEPAM
  8. ZETIA [Concomitant]
     Active Substance: EZETIMIBE

REACTIONS (3)
  - Hot flush [Unknown]
  - Myalgia [Unknown]
  - Weight increased [Unknown]
